FAERS Safety Report 19363030 (Version 5)
Quarter: 2021Q4

REPORT INFORMATION
  Report Type: Spontaneous
  Country: US (occurrence: US)
  Receive Date: 20210603
  Receipt Date: 20211123
  Transmission Date: 20220303
  Serious: No
  Sender: FDA-Public Use
  Company Number: US-LUPIN PHARMACEUTICALS INC.-2021-07304

PATIENT
  Sex: Female
  Weight: 46.712 kg

DRUGS (5)
  1. AZITHROMYCIN [Suspect]
     Active Substance: AZITHROMYCIN
     Indication: Sinusitis
     Dosage: 500 MILLIGRAM (INSTRUCTED TO TAKE 500MG ON THE FIRST DAY OF THE COURSE)
     Route: 048
     Dates: start: 20210502, end: 20210502
  2. AZITHROMYCIN [Suspect]
     Active Substance: AZITHROMYCIN
     Dosage: 250 MILLIGRAM, QD (250MG PER DAY FOR 4 DAYS)
     Route: 048
     Dates: start: 20210503, end: 20210506
  3. SOLOSEC [Suspect]
     Active Substance: SECNIDAZOLE
     Indication: Bacterial vaginosis
     Dosage: UNK, QD
     Route: 048
     Dates: start: 20211006
  4. METRONIDAZOLE [Suspect]
     Active Substance: METRONIDAZOLE
     Indication: Bacterial vaginosis
     Dosage: UNK
     Route: 065
  5. CLINDAMYCIN [Suspect]
     Active Substance: CLINDAMYCIN
     Indication: Bacterial vaginosis
     Dosage: UNK (2%%)
     Route: 067

REACTIONS (3)
  - Sinusitis [Unknown]
  - Abdominal discomfort [Unknown]
  - Drug ineffective [Unknown]
